FAERS Safety Report 23125389 (Version 1)
Quarter: 2023Q4

REPORT INFORMATION
  Report Type: Spontaneous
  Country: CN (occurrence: None)
  Receive Date: 20231030
  Receipt Date: 20231030
  Transmission Date: 20240110
  Serious: Yes (Other)
  Sender: FDA-Public Use
  Company Number: 2023A240458

PATIENT
  Age: 49 Year
  Sex: Male

DRUGS (2)
  1. OSIMERTINIB [Suspect]
     Active Substance: OSIMERTINIB
     Indication: Metastasis
     Route: 048
  2. ICOTINIB [Concomitant]
     Active Substance: ICOTINIB
     Indication: Lung adenocarcinoma

REACTIONS (1)
  - Liver injury [Unknown]
